FAERS Safety Report 6398914-9 (Version None)
Quarter: 2009Q4

REPORT INFORMATION
  Report Type: 
  Country: None (occurrence: None)
  Receive Date: 20091007
  Receipt Date: 20090915
  Transmission Date: 20100525
  Serious: Yes (Other)
  Sender: FDA-Public Use
  Company Number: 001650

PATIENT
  Sex: Male

DRUGS (5)
  1. VIMPAT [Suspect]
     Dosage: (300 MG, INCREASED TO 300 MG), (50 MG BID, DOSAGE REDUCED TO 2X 50 MG), (VIMPAT WAS DISCONTINUED)
     Dates: start: 20090714
  2. VIMPAT [Suspect]
     Dosage: (300 MG, INCREASED TO 300 MG), (50 MG BID, DOSAGE REDUCED TO 2X 50 MG), (VIMPAT WAS DISCONTINUED)
     Dates: start: 20090720
  3. ERGENYL CHRONO [Concomitant]
  4. LUMINAL /00023201/ [Concomitant]
  5. FRISIUM [Concomitant]

REACTIONS (6)
  - APNOEA [None]
  - CONSTIPATION [None]
  - CONVULSION [None]
  - PSYCHOSOMATIC DISEASE [None]
  - RESPIRATORY FAILURE [None]
  - SOMNOLENCE [None]
